FAERS Safety Report 14263636 (Version 4)
Quarter: 2018Q3

REPORT INFORMATION
  Report Type: Report from Study
  Country: None (occurrence: FR)
  Receive Date: 20171208
  Receipt Date: 20180829
  Transmission Date: 20181010
  Serious: Yes (Hospitalization)
  Sender: FDA-Public Use
  Company Number: FR-ABBVIE-17P-056-2169820-00

PATIENT
  Age: 71 Year
  Sex: Male
  Weight: 76.2 kg

DRUGS (23)
  1. VENETOCLAX. [Suspect]
     Active Substance: VENETOCLAX
     Dosage: DAYS 1?28 OF 28?DAY CYCLE, CYCLES 2 + UP
     Route: 048
     Dates: start: 20170725, end: 20171111
  2. SOLUPRED [Concomitant]
     Route: 048
     Dates: start: 20171201, end: 20171211
  3. OFLOCET [Concomitant]
     Active Substance: OFLOXACIN
     Route: 048
     Dates: start: 20171118, end: 20171120
  4. ZINNAT [Concomitant]
     Active Substance: CEFUROXIME AXETIL
     Indication: FEBRILE NEUTROPENIA
     Route: 048
     Dates: start: 20171110, end: 20171116
  5. ALLOPURINOL. [Concomitant]
     Active Substance: ALLOPURINOL
     Indication: GOUT
     Route: 048
     Dates: start: 20170918
  6. PARACETAMOL [Concomitant]
     Active Substance: ACETAMINOPHEN
     Indication: PAIN
  7. OFLOCET [Concomitant]
     Active Substance: OFLOXACIN
     Indication: FEBRILE NEUTROPENIA
     Route: 048
     Dates: start: 20170714, end: 20170721
  8. OFLOCET [Concomitant]
     Active Substance: OFLOXACIN
     Indication: INFLAMMATION OF WOUND
     Route: 048
     Dates: start: 20170921, end: 20170927
  9. ZINNAT [Concomitant]
     Active Substance: CEFUROXIME AXETIL
     Route: 048
     Dates: start: 20171118, end: 20171120
  10. VENETOCLAX. [Suspect]
     Active Substance: VENETOCLAX
     Route: 048
     Dates: start: 20170531, end: 20170531
  11. VENETOCLAX. [Suspect]
     Active Substance: VENETOCLAX
     Dosage: DAYS 1?28 OF 28?DAY CYCLE, CYCLES 2 + UP
     Route: 048
     Dates: start: 20170627, end: 20170724
  12. NORMAL SALINE SOLUTION (0.9% SODIUM CHLORIDE) [Concomitant]
     Indication: FLUID REPLACEMENT
  13. VENETOCLAX. [Suspect]
     Active Substance: VENETOCLAX
     Dosage: DAYS 2?28 OF 28?DAY CYCLE, CYCLE 1
     Route: 048
     Dates: start: 20170601, end: 20170626
  14. AZACITIDINE. [Suspect]
     Active Substance: AZACITIDINE
     Indication: ACUTE MYELOID LEUKAEMIA
     Dosage: DAYS 1?7 OF EACH 28?DAY CYCLE
     Route: 058
     Dates: start: 20170530, end: 20171022
  15. SPIRIVA [Concomitant]
     Active Substance: TIOTROPIUM BROMIDE MONOHYDRATE
     Indication: COUGH
     Route: 048
     Dates: start: 20170615
  16. PARACETAMOL [Concomitant]
     Active Substance: ACETAMINOPHEN
     Indication: DERMATOSIS
     Route: 048
     Dates: start: 20170925
  17. RASBURICASE [Concomitant]
     Active Substance: RASBURICASE
     Indication: PROPHYLAXIS
     Route: 042
     Dates: start: 20170530, end: 20170531
  18. NORMAL SALINE SOLUTION (0.9% SODIUM CHLORIDE) [Concomitant]
     Indication: PROPHYLAXIS
     Route: 042
     Dates: start: 20170529, end: 20170605
  19. OFLOCET [Concomitant]
     Active Substance: OFLOXACIN
     Route: 048
     Dates: start: 20171110, end: 20171116
  20. ZINNAT [Concomitant]
     Active Substance: CEFUROXIME AXETIL
     Indication: FOLLICULITIS
     Route: 048
     Dates: start: 20170921, end: 20170927
  21. VENETOCLAX. [Suspect]
     Active Substance: VENETOCLAX
     Indication: ACUTE MYELOID LEUKAEMIA
     Route: 048
     Dates: start: 20170530, end: 20170530
  22. IMOVANE [Concomitant]
     Active Substance: ZOPICLONE
     Indication: PROPHYLAXIS
     Route: 048
     Dates: start: 20170926
  23. SOLUPRED [Concomitant]
     Indication: ACUTE FEBRILE NEUTROPHILIC DERMATOSIS
     Route: 048
     Dates: start: 20170928, end: 20171012

REACTIONS (1)
  - Abscess jaw [Recovered/Resolved]

NARRATIVE: CASE EVENT DATE: 20171120
